FAERS Safety Report 11283221 (Version 2)
Quarter: 2015Q3

REPORT INFORMATION
  Report Type: Spontaneous
  Country: US (occurrence: US)
  Receive Date: 20150720
  Receipt Date: 20150820
  Transmission Date: 20151125
  Serious: No
  Sender: FDA-Public Use
  Company Number: ALCN2015US004336

PATIENT
  Sex: Female
  Weight: 57.6 kg

DRUGS (2)
  1. MIOSTAT [Suspect]
     Active Substance: CARBACHOL
     Indication: INTRAOCULAR LENS IMPLANT
     Dosage: UNK
     Route: 047
  2. BSS [Suspect]
     Active Substance: CALCIUM CHLORIDE\MAGNESIUM CHLORIDE\POTASSIUM CHLORIDE\SODIUM ACETATE\SODIUM CHLORIDE\SODIUM CITRATE
     Indication: INTRAOCULAR LENS IMPLANT
     Dosage: UNK
     Route: 047
     Dates: start: 20141112, end: 20141112

REACTIONS (1)
  - Visual acuity reduced [Recovered/Resolved]
